FAERS Safety Report 6612471-0 (Version None)
Quarter: 2010Q1

REPORT INFORMATION
  Report Type: 
  Country: None (occurrence: None)
  Receive Date: 20100303
  Receipt Date: 20100219
  Transmission Date: 20100710
  Serious: Yes (Death, Life-Threatening, Hospitalization, Other)
  Sender: FDA-Public Use
  Company Number: JP-PFIZER INC-2008155033

PATIENT
  Age: 54 Year
  Sex: Female
  Weight: 53.2 kg

DRUGS (8)
  1. SUNITINIB MALATE [Suspect]
     Indication: RENAL CELL CARCINOMA
     Dosage: 50 MG, 1X/DAY
     Route: 048
     Dates: start: 20081117, end: 20081130
  2. SOLANAX [Concomitant]
     Route: 048
  3. PURSENNID [Concomitant]
     Dosage: UNK
     Route: 048
     Dates: start: 20081125
  4. PEMOLINE [Concomitant]
     Dosage: UNK
     Route: 048
     Dates: start: 20081125
  5. ZOLOFT [Concomitant]
     Route: 048
     Dates: start: 20081117
  6. LENDORMIN [Concomitant]
     Route: 048
     Dates: end: 20081124
  7. DOGMATYL [Concomitant]
     Route: 048
     Dates: end: 20081124
  8. MAGNESIUM OXIDE [Concomitant]
     Route: 048
     Dates: start: 20081125

REACTIONS (5)
  - DISEASE PROGRESSION [None]
  - IDIOPATHIC THROMBOCYTOPENIC PURPURA [None]
  - PYREXIA [None]
  - RENAL CELL CARCINOMA [None]
  - TREMOR [None]
